FAERS Safety Report 13167980 (Version 1)
Quarter: 2017Q1

REPORT INFORMATION
  Report Type: Spontaneous
  Country: FR (occurrence: FR)
  Receive Date: 20170131
  Receipt Date: 20170131
  Transmission Date: 20170428
  Serious: Yes (Other)
  Sender: FDA-Public Use
  Company Number: FR-NGX_01980_2013

PATIENT
  Age: 53 Year
  Sex: Male
  Weight: 115 kg

DRUGS (8)
  1. INIPOMP 20 - PANTOPRAZOLE [Concomitant]
     Indication: GASTROOESOPHAGEAL REFLUX DISEASE
     Dosage: 1 DF, QD
     Route: 048
  2. TAHOR - ATORVASTATINE [Concomitant]
     Indication: HYPOCHOLESTEROLAEMIA
     Dosage: 1 DF, QD
     Route: 048
  3. QUTENZA [Suspect]
     Active Substance: CAPSAICIN
     Indication: NEURALGIA
     Dosage: 1 PATCH, UNKNOWN FREQ.
     Route: 061
     Dates: start: 20130906, end: 20130906
  4. DEPAKINE - VALPROATE DE SODIUM [Concomitant]
     Indication: EPILEPSY
     Dosage: 500 MG, QD
     Route: 048
  5. RIVOTRIL - CLONAZEPAM [Concomitant]
     Indication: EPILEPSY
     Dosage: 20 GTT, QD
     Route: 048
  6. ALEPSAL - PHENOBARBITAL [Concomitant]
     Indication: EPILEPSY
     Dosage: 1 DF, QD
     Route: 048
  7. NEURONTIN - GABAPENTINE [Concomitant]
     Indication: PAIN
     Dosage: 600 MG, TID
     Route: 048
     Dates: start: 20130806
  8. CYMBALTA  - DULOXETINE [Concomitant]
     Indication: PAIN
     Dosage: 60 MG, QD
     Route: 048
     Dates: start: 20131019

REACTIONS (6)
  - Impaired healing [Recovered/Resolved]
  - Application site pain [Recovered/Resolved]
  - Application site discolouration [Recovered/Resolved]
  - Burns second degree [Recovered/Resolved]
  - Drug effect incomplete [None]
  - Eschar [Recovered/Resolved]

NARRATIVE: CASE EVENT DATE: 20130906
